FAERS Safety Report 8576317-6 (Version None)
Quarter: 2012Q3

REPORT INFORMATION
  Report Type: 
  Country: None (occurrence: None)
  Receive Date: 20120807
  Receipt Date: 20120731
  Transmission Date: 20120928
  Serious: Yes (Other)
  Sender: FDA-Public Use
  Company Number: DE-ROCHE-1097951

PATIENT
  Sex: Male

DRUGS (3)
  1. LUCENTIS [Suspect]
     Route: 050
     Dates: start: 20120701
  2. LUCENTIS [Suspect]
     Dates: start: 20120601
  3. LUCENTIS [Suspect]
     Indication: RETINAL VEIN OCCLUSION
     Route: 050
     Dates: start: 20120501

REACTIONS (1)
  - RETINAL ISCHAEMIA [None]
